FAERS Safety Report 9390007 (Version 2)
Quarter: 2013Q3

REPORT INFORMATION
  Report Type: Spontaneous
  Country: US (occurrence: US)
  Receive Date: 20130708
  Receipt Date: 20130723
  Transmission Date: 20140515
  Serious: Yes (Other)
  Sender: FDA-Public Use
  Company Number: US-AMGEN-USASP2013045091

PATIENT
  Age: 43 Year
  Sex: Female
  Weight: 82.09 kg

DRUGS (3)
  1. ENBREL [Suspect]
     Indication: RHEUMATOID ARTHRITIS
     Dosage: UNK UNK, QWK
     Route: 065
  2. IMURAN                             /00001501/ [Concomitant]
     Dosage: 100 UNK, QD
     Route: 048
  3. PLAQUENIL                          /00072602/ [Concomitant]
     Indication: SYSTEMIC LUPUS ERYTHEMATOSUS
     Dosage: 200 UNK, BID
     Route: 048

REACTIONS (2)
  - Oesophageal stenosis [Recovered/Resolved]
  - Diarrhoea [Recovered/Resolved]
